FAERS Safety Report 12463190 (Version 1)
Quarter: 2016Q2

REPORT INFORMATION
  Report Type: Report from Study
  Country: CO (occurrence: CO)
  Receive Date: 20160614
  Receipt Date: 20160614
  Transmission Date: 20160815
  Serious: Yes (Other)
  Sender: FDA-Public Use
  Company Number: CO-ROCHE-1774464

PATIENT
  Age: 4 Year
  Sex: Male
  Weight: 22 kg

DRUGS (4)
  1. MONTELUCAST [Concomitant]
     Active Substance: MONTELUKAST SODIUM
     Indication: PRODUCT USED FOR UNKNOWN INDICATION
     Route: 065
  2. XOLAIR [Suspect]
     Active Substance: OMALIZUMAB
     Indication: ASTHMA
     Dosage: 300 MG, BIW
     Route: 058
     Dates: start: 20151228
  3. XOLAIR [Suspect]
     Active Substance: OMALIZUMAB
     Dosage: UNK
     Route: 058
     Dates: start: 20160505
  4. DOLEX [Concomitant]
     Active Substance: IBUPROFEN

REACTIONS (4)
  - Seizure [Unknown]
  - Drug administered to patient of inappropriate age [Unknown]
  - Pyrexia [Unknown]
  - Delirium [Unknown]

NARRATIVE: CASE EVENT DATE: 20160505
